FAERS Safety Report 9194287 (Version 3)
Quarter: 2013Q2

REPORT INFORMATION
  Report Type: Spontaneous
  Country: US (occurrence: US)
  Receive Date: 20130327
  Receipt Date: 20130516
  Transmission Date: 20140414
  Serious: Yes (Hospitalization)
  Sender: FDA-Public Use
  Company Number: US-GILEAD-2013-0072472

PATIENT
  Sex: Female

DRUGS (10)
  1. LETAIRIS [Suspect]
     Indication: PULMONARY ARTERIAL HYPERTENSION
     Dosage: 10 MG, QD
     Dates: start: 20081231
  2. BUMETANIDE [Suspect]
  3. QUINAPRIL [Suspect]
  4. LOVASTATIN [Suspect]
  5. ASPIRIN [Suspect]
  6. PIOGLITAZONE [Concomitant]
  7. OXYBUTYNIN [Concomitant]
  8. CYANOCOBALAMIN [Concomitant]
  9. ALLOPURINOL [Concomitant]
  10. SERTRALINE [Concomitant]

REACTIONS (2)
  - Oedema [Unknown]
  - Dyspnoea [Unknown]
